FAERS Safety Report 18057952 (Version 3)
Quarter: 2020Q3

REPORT INFORMATION
  Report Type: Spontaneous
  Country: ES (occurrence: ES)
  Receive Date: 20200723
  Receipt Date: 20200821
  Transmission Date: 20201103
  Serious: Yes (Death, Hospitalization, Other)
  Sender: FDA-Public Use
  Company Number: ES-009507513-2007ESP008647

PATIENT
  Age: 73 Year
  Sex: Female

DRUGS (2)
  1. PEMBROLIZUMAB. [Suspect]
     Active Substance: PEMBROLIZUMAB
     Indication: NON-SMALL CELL LUNG CANCER METASTATIC
     Dosage: 200 MILLIGRAM, Q3W
     Route: 042
     Dates: start: 20181022
  2. PEMBROLIZUMAB. [Suspect]
     Active Substance: PEMBROLIZUMAB
     Indication: LUNG NEOPLASM MALIGNANT

REACTIONS (9)
  - Pain [Fatal]
  - Pulmonary toxicity [Unknown]
  - Muscular weakness [Unknown]
  - Malignant neoplasm progression [Fatal]
  - Pelvic fluid collection [Unknown]
  - General physical health deterioration [Fatal]
  - Pneumonitis [Unknown]
  - Pleural effusion [Unknown]
  - Back pain [Unknown]

NARRATIVE: CASE EVENT DATE: 20181112
